FAERS Safety Report 9144450 (Version 1)
Quarter: 2013Q1

REPORT INFORMATION
  Report Type: Spontaneous
  Country: DE (occurrence: DE)
  Receive Date: 20130306
  Receipt Date: 20130306
  Transmission Date: 20140127
  Serious: Yes (Other)
  Sender: FDA-Public Use
  Company Number: DE-ROCHE-1196132

PATIENT
  Age: 33 Year
  Sex: Female
  Weight: 60 kg

DRUGS (2)
  1. MYCOPHENOLATE MOFETIL [Suspect]
     Indication: MIXED CONNECTIVE TISSUE DISEASE
     Route: 048
     Dates: start: 2008, end: 2011
  2. MYCOPHENOLATE MOFETIL [Suspect]
     Route: 048
     Dates: start: 2011

REACTIONS (1)
  - Large intestinal ulcer [Not Recovered/Not Resolved]
